FAERS Safety Report 7013959-3 (Version None)
Quarter: 2010Q3

REPORT INFORMATION
  Report Type: 
  Country: None (occurrence: None)
  Receive Date: 20100924
  Receipt Date: 20100916
  Transmission Date: 20110219
  Serious: Yes (Death, Other)
  Sender: FDA-Public Use
  Company Number: US-AMGEN-QUU439137

PATIENT
  Sex: Male

DRUGS (6)
  1. NPLATE [Suspect]
     Indication: IDIOPATHIC THROMBOCYTOPENIC PURPURA
     Dates: start: 20081003, end: 20100706
  2. IMMU-G [Concomitant]
     Dates: start: 20080920, end: 20081009
  3. RITUXIMAB [Concomitant]
     Dates: start: 20080924, end: 20081009
  4. VINCRISTINE [Concomitant]
     Dates: start: 20080929, end: 20081006
  5. CORTICOSTEROIDS [Concomitant]
  6. RADIATION THERAPY [Concomitant]

REACTIONS (3)
  - DEATH [None]
  - FALL [None]
  - PLATELET COUNT DECREASED [None]
